FAERS Safety Report 4939160-2 (Version None)
Quarter: 2006Q1

REPORT INFORMATION
  Report Type: 
  Country: None (occurrence: None)
  Receive Date: 20060309
  Receipt Date: 20060309
  Transmission Date: 20060701
  Serious: Yes (Life-Threatening, Hospitalization)
  Sender: FDA-Public Use
  Company Number: None

PATIENT
  Age: 27 Year
  Sex: Female

DRUGS (1)
  1. ZITHROMAX [Suspect]
     Dosage: 500 MG Q DAY PO
     Route: 048
     Dates: start: 20060111, end: 20060111

REACTIONS (2)
  - ANGIONEUROTIC OEDEMA [None]
  - CONVULSION [None]
